FAERS Safety Report 17458091 (Version 2)
Quarter: 2020Q2

REPORT INFORMATION
  Report Type: Spontaneous
  Country: US (occurrence: US)
  Receive Date: 20200225
  Receipt Date: 20200618
  Transmission Date: 20200713
  Serious: No
  Sender: FDA-Public Use
  Company Number: US-ROCHE-2500310

PATIENT
  Age: 11 Year
  Sex: Male

DRUGS (1)
  1. XOFLUZA [Suspect]
     Active Substance: BALOXAVIR MARBOXIL
     Indication: PRODUCT USED FOR UNKNOWN INDICATION
     Dosage: 20 MG TAB/DAY SUPPLY 1/QTY 2
     Route: 065

REACTIONS (3)
  - No adverse event [Unknown]
  - Product use issue [Unknown]
  - Off label use [Unknown]
